FAERS Safety Report 24669992 (Version 1)
Quarter: 2024Q4

REPORT INFORMATION
  Report Type: Spontaneous
  Country: FR (occurrence: FR)
  Receive Date: 20241127
  Receipt Date: 20241127
  Transmission Date: 20250114
  Serious: Yes (Death)
  Sender: ACCORD
  Company Number: None

PATIENT
  Age: 87 Year
  Sex: Male
  Weight: 62 kg

DRUGS (9)
  1. MONTELUKAST SODIUM [Interacting]
     Active Substance: MONTELUKAST SODIUM
     Indication: Product used for unknown indication
     Dates: end: 20240916
  2. KARDEGIC [Interacting]
     Active Substance: ASPIRIN DL-LYSINE
     Indication: Ischaemic stroke
     Dosage: STRENGTH: 75 MG, POWDER FOR ORAL SOLUTION IN SACHET
     Dates: end: 20240916
  3. MIANSERIN [Concomitant]
     Active Substance: MIANSERIN
     Dates: end: 20240916
  4. LANSOPRAZOLE [Concomitant]
     Active Substance: LANSOPRAZOLE
     Dates: end: 20240916
  5. LEVODOPA [Concomitant]
     Active Substance: LEVODOPA
     Dates: end: 20240916
  6. BENSERAZIDE HYDROCHLORIDE [Concomitant]
     Active Substance: BENSERAZIDE HYDROCHLORIDE
     Dates: end: 20240916
  7. OXAZEPAM [Concomitant]
     Active Substance: OXAZEPAM
     Dates: end: 20240916
  8. DOXAZOSIN [Concomitant]
     Active Substance: DOXAZOSIN\DOXAZOSIN MESYLATE
     Dates: end: 20240916
  9. EZETIMIBE [Concomitant]
     Active Substance: EZETIMIBE
     Dates: end: 20240916

REACTIONS (2)
  - Cerebral haematoma [Fatal]
  - Drug interaction [Fatal]

NARRATIVE: CASE EVENT DATE: 20240916
